FAERS Safety Report 19482281 (Version 1)
Quarter: 2021Q3

REPORT INFORMATION
  Report Type: Spontaneous
  Country: JP (occurrence: JP)
  Receive Date: 20210701
  Receipt Date: 20210701
  Transmission Date: 20211014
  Serious: Yes (Death, Hospitalization)
  Sender: FDA-Public Use
  Company Number: JP-EMD SERONO-9247189

PATIENT
  Age: 78 Year
  Sex: Male

DRUGS (2)
  1. INSULIN LISPRO [Concomitant]
     Active Substance: INSULIN LISPRO
     Indication: PRODUCT USED FOR UNKNOWN INDICATION
  2. METFORMIN HYDROCHLORIDE. [Suspect]
     Active Substance: METFORMIN HYDROCHLORIDE
     Indication: TYPE 2 DIABETES MELLITUS

REACTIONS (5)
  - Cardiac failure [Fatal]
  - Hepatic function abnormal [Unknown]
  - Decreased appetite [Recovering/Resolving]
  - Lactic acidosis [Fatal]
  - Rhabdomyolysis [Fatal]

NARRATIVE: CASE EVENT DATE: 202106
